FAERS Safety Report 16674750 (Version 1)
Quarter: 2019Q3

REPORT INFORMATION
  Report Type: Spontaneous
  Country: US (occurrence: US)
  Receive Date: 20190621
  Receipt Date: 20190621
  Transmission Date: 20191004
  Serious: No
  Sender: FDA-Public Use
  Company Number: None

PATIENT
  Age: 62 Year
  Sex: Male

DRUGS (1)
  1. COSENTYX [Suspect]
     Active Substance: SECUKINUMAB
     Indication: PSORIASIS
     Route: 058
     Dates: start: 20190110

REACTIONS (4)
  - Incorrect dose administered [None]
  - Device malfunction [None]
  - Injection site extravasation [None]
  - Therapy cessation [None]

NARRATIVE: CASE EVENT DATE: 20190621
